FAERS Safety Report 17640792 (Version 1)
Quarter: 2020Q2

REPORT INFORMATION
  Report Type: Other
  Country: IT (occurrence: IT)
  Receive Date: 20200408
  Receipt Date: 20200408
  Transmission Date: 20200713
  Serious: Yes (Other)
  Sender: FDA-Public Use
  Company Number: IT-CELLTRION INC.-2020IT021185

PATIENT

DRUGS (1)
  1. INFLIXIMAB (UNKNOWN) [Suspect]
     Active Substance: INFLIXIMAB
     Indication: PSORIATIC ARTHROPATHY
     Dosage: 200 MG
     Route: 042
     Dates: start: 20070101, end: 20160928

REACTIONS (5)
  - Basal cell carcinoma [Recovering/Resolving]
  - Squamous cell carcinoma [Recovering/Resolving]
  - Actinic keratosis [Recovering/Resolving]
  - Skin cancer [Recovering/Resolving]
  - Hyperkeratosis [Recovering/Resolving]

NARRATIVE: CASE EVENT DATE: 20160928
